FAERS Safety Report 24740846 (Version 1)
Quarter: 2024Q4

REPORT INFORMATION
  Report Type: Report from Study
  Country: AR (occurrence: AR)
  Receive Date: 20241217
  Receipt Date: 20241217
  Transmission Date: 20250115
  Serious: Yes (Other)
  Sender: NOVARTIS
  Company Number: AR-002147023-NVSC2023AR213565

PATIENT
  Age: 54 Year
  Sex: Female

DRUGS (4)
  1. COSENTYX [Suspect]
     Active Substance: SECUKINUMAB
     Indication: Psoriasis
     Dosage: 300 MG, QMO
     Route: 058
     Dates: start: 20230921
  2. COSENTYX [Suspect]
     Active Substance: SECUKINUMAB
     Dosage: 300 MG, QMO
     Route: 058
  3. COSENTYX [Suspect]
     Active Substance: SECUKINUMAB
     Dosage: 300 MG, QMO
     Route: 058
     Dates: start: 202309
  4. COSENTYX [Suspect]
     Active Substance: SECUKINUMAB
     Dosage: UNK
     Route: 065
     Dates: end: 202409

REACTIONS (25)
  - Mobility decreased [Unknown]
  - Pneumonia [Unknown]
  - Peripheral swelling [Unknown]
  - Hyperhidrosis [Unknown]
  - Blood pressure decreased [Unknown]
  - Dyspepsia [Unknown]
  - Malaise [Unknown]
  - Decreased appetite [Recovering/Resolving]
  - Abdominal pain upper [Unknown]
  - Psoriasis [Not Recovered/Not Resolved]
  - Skin lesion [Unknown]
  - Pain of skin [Unknown]
  - Skin swelling [Unknown]
  - Depression [Unknown]
  - Depressed mood [Unknown]
  - Product supply issue [Unknown]
  - Arthralgia [Unknown]
  - Bone pain [Unknown]
  - Feeling abnormal [Unknown]
  - Bronchitis [Unknown]
  - Renal cyst [Unknown]
  - Abdominal pain [Unknown]
  - Renal neoplasm [Unknown]
  - Swelling face [Unknown]
  - Blood urine present [Unknown]

NARRATIVE: CASE EVENT DATE: 20240301
